FAERS Safety Report 18191493 (Version 1)
Quarter: 2020Q3

REPORT INFORMATION
  Report Type: Spontaneous
  Country: CN (occurrence: CN)
  Receive Date: 20200824
  Receipt Date: 20200824
  Transmission Date: 20201103
  Serious: Yes (Other)
  Sender: FDA-Public Use
  Company Number: CN-BAXTER-2020BAX017133

PATIENT
  Age: 40 Year
  Sex: Female
  Weight: 57 kg

DRUGS (8)
  1. UROMITEXAN [Suspect]
     Active Substance: MESNA
     Indication: PRODUCT USED FOR UNKNOWN INDICATION
     Dosage: FIRST TO SECOND CYCLE OF CHEMOTHERAPY
     Route: 040
  2. UROMITEXAN [Suspect]
     Active Substance: MESNA
     Dosage: THIRD CYCLE OF CHEMOTHERAPY , DAY 1?3 AT 0, 4, 8 HOURS
     Route: 040
     Dates: start: 20200706, end: 20200708
  3. FAMAXIN (EPIRUBICIN HYDROCHLORIDE) [Suspect]
     Active Substance: EPIRUBICIN HYDROCHLORIDE
     Dosage: DOSE RE?INTRODUCED
     Route: 041
  4. HOLOXAN [Suspect]
     Active Substance: IFOSFAMIDE
     Dosage: DOSE RE?INTRODUCED
     Route: 041
  5. HOLOXAN [Suspect]
     Active Substance: IFOSFAMIDE
     Dosage: THIRD CYCLE OF CHEMOTHERAPY , DAY 1?3
     Route: 041
     Dates: start: 20200706, end: 20200708
  6. HOLOXAN [Suspect]
     Active Substance: IFOSFAMIDE
     Indication: ANGIOSARCOMA
     Dosage: FIRST TO SECOND CYCLE OF CHEMOTHERAPY
     Route: 041
  7. FAMAXIN (EPIRUBICIN HYDROCHLORIDE) [Suspect]
     Active Substance: EPIRUBICIN HYDROCHLORIDE
     Indication: ANGIOSARCOMA
     Dosage: FIRST TO SECOND CYCLE OF CHEMOTHERAPY
     Route: 041
  8. FAMAXIN (EPIRUBICIN HYDROCHLORIDE) [Suspect]
     Active Substance: EPIRUBICIN HYDROCHLORIDE
     Dosage: THIRD CYCLE OF CHEMOTHERAPY , DAY 1?3
     Route: 041
     Dates: start: 20200706, end: 20200708

REACTIONS (1)
  - Myelosuppression [Recovered/Resolved]

NARRATIVE: CASE EVENT DATE: 20200714
